FAERS Safety Report 7905243-8 (Version None)
Quarter: 2011Q4

REPORT INFORMATION
  Report Type: 
  Country: None (occurrence: None)
  Receive Date: 20111109
  Receipt Date: 20111108
  Transmission Date: 20120403
  Serious: No
  Sender: FDA-Public Use
  Company Number: US-BAYER-2011-108564

PATIENT
  Age: 39 Year
  Sex: Female
  Weight: 64.853 kg

DRUGS (4)
  1. PREDNISONE [Concomitant]
  2. ULTRAVIST 150 [Suspect]
     Indication: COMPUTERISED TOMOGRAM
     Dosage: 80 ML, ONCE
     Route: 042
     Dates: start: 20111108, end: 20111108
  3. PLAQUINOL TAB [Concomitant]
  4. CIPROFLOXACIN [Concomitant]

REACTIONS (2)
  - URTICARIA [None]
  - PRURITUS GENERALISED [None]
